FAERS Safety Report 20049018 (Version 3)
Quarter: 2023Q2

REPORT INFORMATION
  Report Type: Spontaneous
  Country: US (occurrence: US)
  Receive Date: 20211109
  Receipt Date: 20230526
  Transmission Date: 20230721
  Serious: Yes (Other)
  Sender: FDA-Public Use
  Company Number: US-UCBSA-2021051487

PATIENT
  Age: 33 Year
  Sex: Female
  Weight: 100.23 kg

DRUGS (5)
  1. CIMZIA [Suspect]
     Active Substance: CERTOLIZUMAB PEGOL
     Indication: Pustular psoriasis
     Dosage: 400 MILLIGRAM, EV 2 WEEKS(QOW)
     Route: 058
     Dates: start: 201809, end: 202109
  2. CIMZIA [Suspect]
     Active Substance: CERTOLIZUMAB PEGOL
     Indication: Off label use
  3. ALBUTEROL [Concomitant]
     Active Substance: ALBUTEROL
     Indication: Upper respiratory tract infection
     Dosage: UNK
     Dates: start: 20210722
  4. ALLEGRA [Concomitant]
     Active Substance: FEXOFENADINE HYDROCHLORIDE
     Indication: Upper respiratory tract infection
     Dosage: UNK
     Dates: start: 20210722
  5. MOMETASONE FUROATE [Concomitant]
     Active Substance: MOMETASONE FUROATE
     Indication: Upper respiratory tract infection
     Dosage: UNK
     Dates: start: 20210722

REACTIONS (3)
  - Upper respiratory tract infection [Recovered/Resolved]
  - Psoriasis [Unknown]
  - Off label use [Unknown]

NARRATIVE: CASE EVENT DATE: 20180901
